FAERS Safety Report 21574028 (Version 1)
Quarter: 2022Q4

REPORT INFORMATION
  Report Type: Spontaneous
  Country: US (occurrence: US)
  Receive Date: 20221109
  Receipt Date: 20221109
  Transmission Date: 20230113
  Serious: No
  Sender: FDA-Public Use
  Company Number: US-Merz Pharmaceuticals GmbH-22-03144

PATIENT
  Age: 60 Year
  Sex: Female

DRUGS (1)
  1. XEOMIN [Suspect]
     Active Substance: INCOBOTULINUMTOXINA
     Indication: Product used for unknown indication
     Dates: start: 202210, end: 202210

REACTIONS (4)
  - Feeling abnormal [Unknown]
  - Flushing [Unknown]
  - Muscle twitching [Unknown]
  - Influenza like illness [Unknown]

NARRATIVE: CASE EVENT DATE: 20221001
